FAERS Safety Report 12243556 (Version 1)
Quarter: 2016Q2

REPORT INFORMATION
  Report Type: Spontaneous
  Country: US (occurrence: US)
  Receive Date: 20160406
  Receipt Date: 20160406
  Transmission Date: 20160815
  Serious: No
  Sender: FDA-Public Use
  Company Number: US-BAYER-2016-064360

PATIENT
  Age: 44 Year
  Sex: Female
  Weight: 72.56 kg

DRUGS (2)
  1. LOTRIMIN AF ANTIFUNGAL [Suspect]
     Active Substance: MICONAZOLE NITRATE
     Indication: TINEA PEDIS
     Dosage: 1 DF, BID
     Route: 061
     Dates: end: 201602
  2. LOTRIMIN ULTRA ANTIFUNGAL [Suspect]
     Active Substance: BUTENAFINE HYDROCHLORIDE
     Indication: TINEA PEDIS
     Dosage: 1 DF, UNK
     Route: 061
     Dates: end: 201603

REACTIONS (4)
  - Rash [Recovered/Resolved]
  - Skin exfoliation [None]
  - Drug ineffective [None]
  - Rash [Recovered/Resolved]

NARRATIVE: CASE EVENT DATE: 201602
